FAERS Safety Report 7777123-2 (Version None)
Quarter: 2011Q3

REPORT INFORMATION
  Report Type: 
  Country: None (occurrence: None)
  Receive Date: 20110926
  Receipt Date: 20110917
  Transmission Date: 20111222
  Serious: Yes (Other)
  Sender: FDA-Public Use
  Company Number: DE-BRISTOL-MYERS SQUIBB COMPANY-16081341

PATIENT
  Age: 63 Year
  Sex: Female

DRUGS (1)
  1. CISPLATIN [Suspect]

REACTIONS (1)
  - ANAPHYLACTIC REACTION [None]
